FAERS Safety Report 20499571 (Version 1)
Quarter: 2022Q1

REPORT INFORMATION
  Report Type: Spontaneous
  Country: DE (occurrence: DE)
  Receive Date: 20220222
  Receipt Date: 20220222
  Transmission Date: 20220424
  Serious: Yes (Hospitalization, Other)
  Sender: FDA-Public Use
  Company Number: DE-AMGEN-DEUSP2022028445

PATIENT

DRUGS (1)
  1. ADALIMUMAB [Suspect]
     Active Substance: ADALIMUMAB
     Indication: Colitis ulcerative
     Dosage: UNK
     Route: 065

REACTIONS (7)
  - Rectal abscess [Unknown]
  - Anal abscess [Unknown]
  - Anaemia [Unknown]
  - Infection [Unknown]
  - Opportunistic infection [Unknown]
  - Skin disorder [Unknown]
  - Drug effect less than expected [Unknown]
